FAERS Safety Report 11925886 (Version 2)
Quarter: 2016Q1

REPORT INFORMATION
  Report Type: Report from Study
  Country: HR (occurrence: HR)
  Receive Date: 20160119
  Receipt Date: 20160129
  Transmission Date: 20160526
  Serious: Yes (Hospitalization, Other)
  Sender: FDA-Public Use
  Company Number: HR-ROCHE-1693381

PATIENT
  Age: 71 Year
  Sex: Male

DRUGS (5)
  1. ZEFFIX [Concomitant]
     Active Substance: LAMIVUDINE
     Indication: BLOOD DONOR
     Route: 048
  2. MYCOPHENOLATE MOFETIL. [Suspect]
     Active Substance: MYCOPHENOLATE MOFETIL
     Indication: IMMUNOSUPPRESSION
     Route: 048
     Dates: start: 20130304
  3. PANTOPRAZOL [Concomitant]
     Active Substance: PANTOPRAZOLE SODIUM
     Route: 048
  4. ALDIZEM [Concomitant]
     Route: 048
  5. SANDIMMUN NEORAL [Suspect]
     Active Substance: CYCLOSPORINE
     Indication: LIVER TRANSPLANT
     Route: 048
     Dates: start: 20130304

REACTIONS (9)
  - Haemoglobin decreased [Unknown]
  - Urinary tract infection [Not Recovered/Not Resolved]
  - Bladder diverticulitis [Not Recovered/Not Resolved]
  - Calculus bladder [Not Recovered/Not Resolved]
  - Blood triglycerides increased [Unknown]
  - Cystitis [Not Recovered/Not Resolved]
  - Blood urea increased [Unknown]
  - Blood bilirubin increased [Unknown]
  - Blood creatinine increased [Unknown]

NARRATIVE: CASE EVENT DATE: 20140110
